FAERS Safety Report 22814510 (Version 9)
Quarter: 2023Q4

REPORT INFORMATION
  Report Type: Report from Study
  Country: CA (occurrence: CA)
  Receive Date: 20230811
  Receipt Date: 20231206
  Transmission Date: 20240110
  Serious: Yes (Hospitalization, Other)
  Sender: FDA-Public Use
  Company Number: CA-KOREA IPSEN Pharma-2023-14043

PATIENT
  Age: 73 Year
  Sex: Male

DRUGS (9)
  1. LANREOTIDE ACETATE [Suspect]
     Active Substance: LANREOTIDE ACETATE
     Indication: Carcinoid syndrome
     Dosage: 120 MG EVERY 4 WEEKS
     Route: 058
     Dates: start: 20230509
  2. LANREOTIDE ACETATE [Suspect]
     Active Substance: LANREOTIDE ACETATE
     Indication: Gastroenteropancreatic neuroendocrine tumour disease
     Dosage: 120 MG EVERY 3 WEEKS
     Route: 058
     Dates: end: 20231009
  3. APIXABAN [Concomitant]
     Active Substance: APIXABAN
     Dosage: 5MG BID
  4. SPIRONOLACTONE [Concomitant]
     Active Substance: SPIRONOLACTONE
  5. VITAMINS [Concomitant]
     Active Substance: VITAMINS
  6. VALSARTAN [Concomitant]
     Active Substance: VALSARTAN
     Dosage: BID
  7. JARDIANCE [Concomitant]
     Active Substance: EMPAGLIFLOZIN
     Dosage: 10MG OD
  8. BISOPROLOL [Concomitant]
     Active Substance: BISOPROLOL\BISOPROLOL FUMARATE
     Dosage: 5MG OD
  9. ROSUVASTATIN [Concomitant]
     Active Substance: ROSUVASTATIN
     Dosage: 10MG OD

REACTIONS (16)
  - Malignant neoplasm progression [Unknown]
  - Diarrhoea [Unknown]
  - Tachycardia [Unknown]
  - Abdominal pain [Unknown]
  - Constipation [Unknown]
  - Toxicity to various agents [Unknown]
  - Flatulence [Not Recovered/Not Resolved]
  - Mucous stools [Not Recovered/Not Resolved]
  - Abdominal pain [Not Recovered/Not Resolved]
  - Weight decreased [Not Recovered/Not Resolved]
  - Flushing [Not Recovered/Not Resolved]
  - Pain [Not Recovered/Not Resolved]
  - Anxiety [Not Recovered/Not Resolved]
  - Stress [Not Recovered/Not Resolved]
  - Off label use [Unknown]
  - Drug ineffective [Unknown]

NARRATIVE: CASE EVENT DATE: 20230101
